FAERS Safety Report 10643063 (Version 1)
Quarter: 2014Q4

REPORT INFORMATION
  Report Type: Spontaneous
  Country: US (occurrence: None)
  Receive Date: 20141209
  Receipt Date: 20141209
  Transmission Date: 20150529
  Serious: Yes (Death)
  Sender: FDA-Public Use
  Company Number: None

PATIENT
  Age: 63 Year
  Sex: Male

DRUGS (4)
  1. LUPRON DEPOT [Suspect]
     Active Substance: LEUPROLIDE ACETATE
     Indication: PROSTATE CANCER
     Dosage: 1 INJECTION, EVERY 3 MONTHS, INTRAMUSCULAR
     Route: 030
     Dates: start: 20140807, end: 20141204
  2. LISINOPRIL. [Concomitant]
     Active Substance: LISINOPRIL
  3. ZYTIGA [Suspect]
     Active Substance: ABIRATERONE ACETATE
     Indication: PROSTATE CANCER
     Dosage: 4 TABLETS, QD, ORAL
     Route: 048
     Dates: start: 20140626, end: 20141122
  4. PREDNISONE. [Concomitant]
     Active Substance: PREDNISONE

REACTIONS (6)
  - Asthenia [None]
  - Pelvic neoplasm [None]
  - Abdominal pain upper [None]
  - Sudden death [None]
  - Swelling [None]
  - Bone pain [None]

NARRATIVE: CASE EVENT DATE: 20141204
